FAERS Safety Report 12119442 (Version 1)
Quarter: 2016Q1

REPORT INFORMATION
  Report Type: Report from Study
  Country: US (occurrence: US)
  Receive Date: 20160226
  Receipt Date: 20160226
  Transmission Date: 20160526
  Serious: Yes (Death, Hospitalization)
  Sender: FDA-Public Use
  Company Number: US-JNJFOC-20160102444

PATIENT
  Age: 82 Year
  Sex: Male

DRUGS (2)
  1. WARFARIN [Suspect]
     Active Substance: WARFARIN
     Indication: PRODUCT USED FOR UNKNOWN INDICATION
     Route: 065
  2. XARELTO [Suspect]
     Active Substance: RIVAROXABAN
     Indication: PRODUCT USED FOR UNKNOWN INDICATION
     Route: 048

REACTIONS (9)
  - Death [Fatal]
  - Drug hypersensitivity [Unknown]
  - Renal impairment [Unknown]
  - Loss of consciousness [Unknown]
  - Feeling abnormal [Unknown]
  - Hepatic function abnormal [Unknown]
  - Hyperhidrosis [Unknown]
  - Hypokinesia [Unknown]
  - Asthenia [Unknown]

NARRATIVE: CASE EVENT DATE: 201408
